FAERS Safety Report 8948266 (Version 1)
Quarter: 2012Q4

REPORT INFORMATION
  Report Type: 
  Country: NE (occurrence: NE)
  Receive Date: 20121206
  Receipt Date: 20121206
  Transmission Date: 20130627
  Serious: Yes (Death, Hospitalization)
  Sender: FDA-Public Use
  Company Number: PHHY2012NE111504

PATIENT
  Sex: Male

DRUGS (2)
  1. GLIVEC [Suspect]
     Indication: CHRONIC MYELOID LEUKAEMIA
     Dosage: 400 mg, UNK
  2. GLIVEC [Suspect]
     Dosage: 300 mg, UNK

REACTIONS (1)
  - Death [Fatal]
